FAERS Safety Report 24529447 (Version 1)
Quarter: 2024Q4

REPORT INFORMATION
  Report Type: Spontaneous
  Country: GB (occurrence: GB)
  Receive Date: 20241021
  Receipt Date: 20241021
  Transmission Date: 20250115
  Serious: Yes (Other)
  Sender: SANDOZ
  Company Number: None

PATIENT
  Age: 44 Year
  Sex: Female

DRUGS (2)
  1. ESTRADIOL [Suspect]
     Active Substance: ESTRADIOL
     Indication: Hormone replacement therapy
     Dosage: 100
     Route: 065
     Dates: start: 20241001, end: 20241017
  2. PROGESTERONE [Concomitant]
     Active Substance: PROGESTERONE
     Indication: Hormone replacement therapy
     Dosage: UNK
     Route: 065

REACTIONS (3)
  - Menstrual clots [Recovering/Resolving]
  - Heavy menstrual bleeding [Recovering/Resolving]
  - Dysmenorrhoea [Recovering/Resolving]

NARRATIVE: CASE EVENT DATE: 20241010
